FAERS Safety Report 6124314-2 (Version None)
Quarter: 2009Q1

REPORT INFORMATION
  Report Type: 
  Country: None (occurrence: None)
  Receive Date: 20090319
  Receipt Date: 20090302
  Transmission Date: 20090719
  Serious: Yes (Life-Threatening)
  Sender: FDA-Public Use
  Company Number: DE-ASTRAZENECA-2009SE01144

PATIENT
  Age: 76 Year
  Sex: Male
  Weight: 90.5 kg

DRUGS (7)
  1. BELOC-ZOK [Suspect]
     Indication: HYPERTENSION
     Route: 048
     Dates: start: 20070701
  2. LISINOPRIL [Suspect]
     Indication: HYPERTENSION
     Route: 048
     Dates: start: 20070701
  3. MOXONIDINE [Suspect]
     Indication: HYPERTENSION
     Route: 048
     Dates: start: 20070701
  4. AMLODIPINE [Concomitant]
     Route: 048
     Dates: start: 20070701
  5. ACETYLSALICYLIC ACID SRT [Concomitant]
     Route: 048
     Dates: start: 20070701, end: 20081128
  6. SIMVASTATIN [Concomitant]
     Dates: start: 20070701
  7. EXFORGE [Concomitant]
     Route: 048
     Dates: start: 20070701

REACTIONS (2)
  - BRADYCARDIA [None]
  - HYPERKALAEMIA [None]
